FAERS Safety Report 10474512 (Version 1)
Quarter: 2014Q3

REPORT INFORMATION
  Report Type: Report from Study
  Country: US (occurrence: US)
  Receive Date: 20140924
  Receipt Date: 20140924
  Transmission Date: 20150326
  Serious: No
  Sender: FDA-Public Use
  Company Number: US-ALEXION-A201002286

PATIENT
  Sex: Female

DRUGS (2)
  1. SOLIRIS [Suspect]
     Active Substance: ECULIZUMAB
     Indication: PAROXYSMAL NOCTURNAL HAEMOGLOBINURIA
     Dosage: UNK
     Route: 042
  2. PREDNISONE. [Concomitant]
     Active Substance: PREDNISONE
     Indication: PROPHYLAXIS

REACTIONS (9)
  - Back pain [Unknown]
  - Pain [Unknown]
  - Haemoglobinuria [Unknown]
  - Arthritis [Unknown]
  - Systemic lupus erythematosus [Unknown]
  - Quality of life decreased [Unknown]
  - Rhinorrhoea [Unknown]
  - Stress [Unknown]
  - Fatigue [Unknown]
